FAERS Safety Report 25149747 (Version 1)
Quarter: 2025Q2

REPORT INFORMATION
  Report Type: Spontaneous
  Country: CN (occurrence: CN)
  Receive Date: 20250402
  Receipt Date: 20250402
  Transmission Date: 20250716
  Serious: Yes (Life-Threatening, Hospitalization, Other)
  Sender: ORGANON
  Company Number: CN-ORGANON-O2503CHN003001

PATIENT
  Age: 28 Year
  Sex: Female

DRUGS (1)
  1. FOLLITROPIN BETA [Suspect]
     Active Substance: FOLLITROPIN BETA
     Indication: Ovulation induction
     Dosage: 150 INTERNATIONAL UNIT, QD
     Route: 058
     Dates: start: 20240126, end: 20240126

REACTIONS (3)
  - Ovarian hyperstimulation syndrome [Recovering/Resolving]
  - Decreased appetite [Recovering/Resolving]
  - Headache [Recovering/Resolving]

NARRATIVE: CASE EVENT DATE: 20240203
